FAERS Safety Report 13909089 (Version 1)
Quarter: 2017Q3

REPORT INFORMATION
  Report Type: Spontaneous
  Country: US (occurrence: US)
  Receive Date: 20170828
  Receipt Date: 20170828
  Transmission Date: 20171127
  Serious: No
  Sender: FDA-Public Use
  Company Number: US-009507513-1708USA010563

PATIENT
  Age: 66 Year
  Sex: Female

DRUGS (2)
  1. ACETAZOLAMIDE. [Suspect]
     Active Substance: ACETAZOLAMIDE
     Indication: ACOUSTIC NEUROMA
     Dosage: 250 MG, BID
  2. DEXAMETHASONE. [Suspect]
     Active Substance: DEXAMETHASONE
     Indication: ACOUSTIC NEUROMA
     Dosage: 2 MG, TID
     Route: 048

REACTIONS (1)
  - Drug ineffective [Unknown]
